FAERS Safety Report 18982146 (Version 1)
Quarter: 2021Q1

REPORT INFORMATION
  Report Type: Spontaneous
  Country: JP (occurrence: JP)
  Receive Date: 20210308
  Receipt Date: 20210308
  Transmission Date: 20210420
  Serious: Yes (Hospitalization, Other)
  Sender: FDA-Public Use
  Company Number: JP-DSJP-DSJ-2021-106224

PATIENT
  Age: 55 Year
  Sex: Male
  Weight: 89 kg

DRUGS (5)
  1. BENZBROMARONE [Concomitant]
     Active Substance: BENZBROMARONE
     Dosage: UNK
     Route: 048
  2. PROTON PUMP INHIBITORS [Concomitant]
     Active Substance: UNSPECIFIED INGREDIENT
     Dosage: UNK
     Route: 048
  3. REZALTAS COMBINATION TABLETS [Suspect]
     Active Substance: AZELNIDIPINE\OLMESARTAN MEDOXOMIL
     Indication: HYPERTENSION
     Dosage: UNK
     Route: 048
  4. LIXIANA TABLETS [Suspect]
     Active Substance: EDOXABAN TOSYLATE
     Indication: ATRIAL FIBRILLATION
     Dosage: 60MG/DAY
     Route: 048
  5. ROSUVASTATIN                       /01588602/ [Concomitant]
     Active Substance: ROSUVASTATIN CALCIUM
     Dosage: UNK
     Route: 048

REACTIONS (4)
  - Mitral valve incompetence [Unknown]
  - Respiratory failure [Recovering/Resolving]
  - Pyrexia [Unknown]
  - Heparin-induced thrombocytopenia [Unknown]
